FAERS Safety Report 5023352-0 (Version None)
Quarter: 2006Q2

REPORT INFORMATION
  Report Type: 
  Country: None (occurrence: None)
  Receive Date: 20060525
  Receipt Date: 20060511
  Transmission Date: 20061013
  Serious: Yes (Hospitalization)
  Sender: FDA-Public Use
  Company Number: THYM-10674

PATIENT
  Age: 10 Year
  Sex: Female

DRUGS (4)
  1. THYMOGLOBULIN [Suspect]
     Indication: GRAFT VERSUS HOST DISEASE
     Dosage: 1.25 MG/KG QOD IV
     Route: 042
  2. PREDNISONE [Concomitant]
  3. CYCLOSPORINE [Concomitant]
  4. DEFIBROTIDE [Concomitant]

REACTIONS (5)
  - GRAND MAL CONVULSION [None]
  - HEPATOMEGALY [None]
  - HEPATOTOXICITY [None]
  - HYPOMAGNESAEMIA [None]
  - VENOOCCLUSIVE DISEASE [None]
